FAERS Safety Report 25323822 (Version 1)
Quarter: 2025Q2

REPORT INFORMATION
  Report Type: Spontaneous
  Country: US (occurrence: US)
  Receive Date: 20250516
  Receipt Date: 20250516
  Transmission Date: 20250717
  Serious: Yes (Death, Other)
  Sender: AMGEN
  Company Number: US-AMGEN-USASP2025094847

PATIENT
  Age: 46 Year
  Sex: Male

DRUGS (9)
  1. RITUXIMAB [Suspect]
     Active Substance: RITUXIMAB
     Indication: Lymphoproliferative disorder
     Dosage: UNK, QWK
     Route: 065
  2. RITUXIMAB [Suspect]
     Active Substance: RITUXIMAB
     Indication: Lymphoma
  3. PREDNISONE [Suspect]
     Active Substance: PREDNISONE
     Indication: Lymphoma
     Route: 065
  4. BELATACEPT [Concomitant]
     Active Substance: BELATACEPT
     Dosage: UNK UNK, QMO
  5. TACROLIMUS [Concomitant]
     Active Substance: TACROLIMUS
  6. SIROLIMUS [Concomitant]
     Active Substance: SIROLIMUS
  7. CYCLOPHOSPHAMIDE [Concomitant]
     Active Substance: CYCLOPHOSPHAMIDE
  8. DOXORUBICIN [Concomitant]
     Active Substance: DOXORUBICIN
  9. VINCRISTINE [Concomitant]
     Active Substance: VINCRISTINE

REACTIONS (6)
  - Death [Fatal]
  - Cardio-respiratory arrest [Unknown]
  - Brain injury [Unknown]
  - Unilateral bronchospasm [Unknown]
  - Haemoptysis [Unknown]
  - Pulmonary mass [Unknown]
